FAERS Safety Report 12187489 (Version 3)
Quarter: 2016Q2

REPORT INFORMATION
  Report Type: Spontaneous
  Country: JP (occurrence: JP)
  Receive Date: 20160317
  Receipt Date: 20160418
  Transmission Date: 20160815
  Serious: Yes (Hospitalization, Other)
  Sender: FDA-Public Use
  Company Number: JP-PFIZER INC-2016158203

PATIENT
  Age: 72 Year
  Sex: Male

DRUGS (6)
  1. DECADRON [Concomitant]
     Active Substance: DEXAMETHASONE
     Dosage: 3.3 MG, UNK
     Dates: start: 20160120, end: 20160120
  2. CELECOX [Suspect]
     Active Substance: CELECOXIB
     Indication: OSTEOARTHRITIS
     Dosage: 100 MG, 2X/DAY
     Route: 048
     Dates: start: 20160120, end: 20160125
  3. REBAMIPIDE [Concomitant]
     Active Substance: REBAMIPIDE
     Dosage: UNK
     Route: 048
     Dates: start: 20160120, end: 20160125
  4. CARBOCAINE [Concomitant]
     Active Substance: MEPIVACAINE HYDROCHLORIDE
     Dosage: 1 ML, UNK
     Dates: start: 20160120, end: 20160120
  5. PRANLUKAST [Concomitant]
     Active Substance: PRANLUKAST
     Dosage: 11.2 MG, UNK
     Dates: start: 20160106
  6. FEXOFENADINE HYDROCHLORIDE. [Concomitant]
     Active Substance: FEXOFENADINE HYDROCHLORIDE
     Dosage: 60 MG, UNK
     Dates: start: 20160106

REACTIONS (7)
  - Diarrhoea [Unknown]
  - Cerebral infarction [Unknown]
  - Myocardial infarction [Unknown]
  - Malaise [Recovering/Resolving]
  - Interstitial lung disease [Recovering/Resolving]
  - Cardiac aneurysm [Unknown]
  - Abdominal pain [Unknown]

NARRATIVE: CASE EVENT DATE: 20160125
